FAERS Safety Report 8328638-X (Version None)
Quarter: 2012Q2

REPORT INFORMATION
  Report Type: 
  Country: None (occurrence: None)
  Receive Date: 20120430
  Receipt Date: 20120413
  Transmission Date: 20120825
  Serious: Yes (Hospitalization)
  Sender: FDA-Public Use
  Company Number: 2011SGN00208

PATIENT
  Age: 33 Year
  Sex: Female
  Weight: 48.1 kg

DRUGS (14)
  1. ZOFRAN [Concomitant]
  2. TRAMADOL HCL [Concomitant]
  3. VINBLASTINE SULFATE [Suspect]
     Indication: HODGKIN'S DISEASE
     Dosage: 6MG/M2, Q14D, INTRAVENOUS
     Route: 042
     Dates: start: 20110408, end: 20110909
  4. ANUSOL (BISMUTH DYDROXIDE, BISMUTH SUBGALLATE, BORIC ACD, MYROXYLON BA [Concomitant]
  5. BLEOMYCIN SULFATE [Suspect]
     Indication: HODGKIN'S DISEASE
     Dosage: 10 UNITS/M2, Q14D, INTRAVENOUS
     Route: 042
     Dates: start: 20110408, end: 20110826
  6. GRANISETRON (GRANISETRON HYDROCHLORIDE) [Concomitant]
  7. BRENTUXIMAB VEDOTIN (BRENTUXIMAB VEDOTIN) INJECTION [Suspect]
     Indication: HODGKIN'S DISEASE
     Dosage: 1.3 MG/KG, Q14D, INTRAVENOUS
     Route: 042
     Dates: start: 20110408, end: 20110909
  8. PROTEIN SUPPLEMENTS [Concomitant]
  9. PHENERGAN HCL [Concomitant]
  10. MAGNESIUM (MAGNESIUM) [Concomitant]
  11. DOXORUBICIN HYDROCHLORIDE [Suspect]
     Indication: HODGKIN'S DISEASE
     Dosage: 25 MG/M2, Q14D, INTRAVENOUS
     Route: 042
     Dates: start: 20110408, end: 20110909
  12. DACARBAZINE [Suspect]
     Indication: HODGKIN'S DISEASE
     Dosage: 375 MG/M2, Q14D, INTRAVENOUS
     Route: 042
     Dates: start: 20110408, end: 20110909
  13. LACTULOSE [Concomitant]
  14. ATIVAN [Concomitant]

REACTIONS (16)
  - PULMONARY TOXICITY [None]
  - ATELECTASIS [None]
  - PNEUMOTHORAX [None]
  - HEADACHE [None]
  - SUBCUTANEOUS EMPHYSEMA [None]
  - DIFFUSE ALVEOLAR DAMAGE [None]
  - PULMONARY ALVEOLAR HAEMORRHAGE [None]
  - ACUTE RESPIRATORY FAILURE [None]
  - CEREBRAL HAEMORRHAGE [None]
  - TACHYCARDIA [None]
  - PNEUMOCYSTIS JIROVECI PNEUMONIA [None]
  - NERVOUS SYSTEM DISORDER [None]
  - POSTERIOR REVERSIBLE ENCEPHALOPATHY SYNDROME [None]
  - CARDIOMEGALY [None]
  - AREFLEXIA [None]
  - PERICARDIAL EFFUSION [None]
